FAERS Safety Report 7261440-9 (Version None)
Quarter: 2011Q1

REPORT INFORMATION
  Report Type: 
  Country: None (occurrence: None)
  Receive Date: 20110130
  Receipt Date: 20100930
  Transmission Date: 20110831
  Serious: No
  Sender: FDA-Public Use
  Company Number: US-ABBOTT-10P-163-0674832-00

PATIENT
  Age: 49 Year
  Sex: Male

DRUGS (5)
  1. VENLAFAXINE [Concomitant]
     Indication: ANXIETY
  2. LISINOPRIL [Concomitant]
     Indication: HYPERTENSION
  3. HUMIRA [Suspect]
     Indication: PSORIATIC ARTHROPATHY
  4. FLONASE [Concomitant]
     Indication: SINUS DISORDER
  5. SIMVASTATIN [Concomitant]
     Indication: ILL-DEFINED DISORDER

REACTIONS (1)
  - FURUNCLE [None]
